FAERS Safety Report 6537162-6 (Version None)
Quarter: 2010Q1

REPORT INFORMATION
  Report Type: 
  Country: None (occurrence: None)
  Receive Date: 20100110
  Receipt Date: 20091231
  Transmission Date: 20100710
  Serious: Yes (Death)
  Sender: FDA-Public Use
  Company Number: 20097545

PATIENT
  Sex: Male

DRUGS (1)
  1. LIORESAL [Suspect]
     Indication: MUSCLE SPASTICITY
     Dosage: 550 MCG, DAILY, INTRATHECAL
     Route: 037

REACTIONS (3)
  - GENERAL PHYSICAL HEALTH DETERIORATION [None]
  - INCISION SITE INFECTION [None]
  - PSEUDOMONAS INFECTION [None]
